FAERS Safety Report 7416031-3 (Version None)
Quarter: 2011Q2

REPORT INFORMATION
  Report Type: 
  Country: None (occurrence: None)
  Receive Date: 20110414
  Receipt Date: 20110404
  Transmission Date: 20111010
  Serious: Yes (Congenital Anomaly, Other)
  Sender: FDA-Public Use
  Company Number: PHHY2011US28192

PATIENT
  Sex: Male

DRUGS (4)
  1. METHIMAZOLE [Suspect]
     Indication: BASEDOW'S DISEASE
     Dosage: 40 MG
     Route: 064
  2. AMPHETAMINE [Suspect]
     Dosage: UNK UKN, UNK
  3. METHIMAZOLE [Suspect]
     Dosage: 10 MG
     Route: 064
  4. PROPRANOLOL [Suspect]
     Dosage: 20 MG, TID
     Route: 064

REACTIONS (4)
  - DYSMORPHISM [None]
  - DRUG EXPOSURE DURING PREGNANCY [None]
  - SMALL FOR DATES BABY [None]
  - UMBILICAL CORD ABNORMALITY [None]
